FAERS Safety Report 12996936 (Version 2)
Quarter: 2016Q4

REPORT INFORMATION
  Report Type: Spontaneous
  Country: US (occurrence: US)
  Receive Date: 20161205
  Receipt Date: 20161222
  Transmission Date: 20170207
  Serious: Yes (Hospitalization, Other)
  Sender: FDA-Public Use
  Company Number: US-AMGEN-USASP2016169071

PATIENT
  Sex: Male

DRUGS (2)
  1. ENBREL [Suspect]
     Active Substance: ETANERCEPT
     Indication: PRODUCT USED FOR UNKNOWN INDICATION
     Dosage: 50 MG, 2 TIMES/WK
     Route: 058
     Dates: end: 201611
  2. MTX [Suspect]
     Active Substance: METHOTREXATE SODIUM
     Indication: PRODUCT USED FOR UNKNOWN INDICATION
     Dosage: UNK
     Route: 065

REACTIONS (8)
  - Loss of consciousness [Unknown]
  - Immunosuppression [Unknown]
  - Intentional product misuse [Unknown]
  - Alpha tumour necrosis factor increased [Unknown]
  - Overdose [Unknown]
  - Bacterial sepsis [Unknown]
  - Cardiac infection [Unknown]
  - Renal cell carcinoma [Unknown]
